FAERS Safety Report 7382097-2 (Version None)
Quarter: 2011Q1

REPORT INFORMATION
  Report Type: 
  Country: None (occurrence: None)
  Receive Date: 20110329
  Receipt Date: 20110302
  Transmission Date: 20110831
  Serious: No
  Sender: FDA-Public Use
  Company Number: US-B.I. PHARMACEUTICALS,INC./RIDGEFIELD-2011-BP-02042BP

PATIENT
  Sex: Female

DRUGS (9)
  1. MIDODRINE HYDROCHLORIDE [Concomitant]
     Dosage: 5 MG
  2. SIMVASTATIN [Concomitant]
     Dosage: 40 MG
  3. WELLBUTRIN [Concomitant]
  4. POTASSIUM CHLORIDE ER [Concomitant]
  5. DIGOXIN [Concomitant]
  6. VERAPAMIL [Concomitant]
  7. MULTAQ [Concomitant]
  8. ESTRADIOL [Concomitant]
  9. PRADAXA [Suspect]
     Indication: CEREBROVASCULAR ACCIDENT PROPHYLAXIS
     Dosage: 300 MG
     Route: 048
     Dates: start: 20110112

REACTIONS (3)
  - PILOERECTION [None]
  - OCULAR HYPERAEMIA [None]
  - NASOPHARYNGITIS [None]
